FAERS Safety Report 8104676-7 (Version None)
Quarter: 2012Q1

REPORT INFORMATION
  Report Type: 
  Country: None (occurrence: None)
  Receive Date: 20120201
  Receipt Date: 20120120
  Transmission Date: 20120608
  Serious: Yes (Hospitalization)
  Sender: FDA-Public Use
  Company Number: GR-PFIZER INC-2011160540

PATIENT
  Age: 46 Year
  Sex: Male
  Weight: 84 kg

DRUGS (12)
  1. DURAGESIC-100 [Concomitant]
     Indication: PAIN
     Dosage: 1 PATCH OF 100 MG, EVERY 3 DAYS
     Route: 062
     Dates: start: 20110221
  2. CYMBALTA [Concomitant]
     Indication: DEPRESSION
     Dosage: 1 DF, 1X/DAY
     Route: 048
  3. ZYVODIX [Concomitant]
     Indication: PYREXIA
     Dosage: 600 MG, 1X2
     Dates: start: 20110225, end: 20110309
  4. MORPHINE [Concomitant]
     Indication: PAIN
     Dosage: 1/2 AMPULE, 1X1
     Route: 058
     Dates: start: 20110221, end: 20110311
  5. TEMSIROLIMUS [Suspect]
     Indication: PANCREATIC CARCINOMA METASTATIC
     Dosage: 20 MG, WEEKLY
     Route: 042
     Dates: start: 20110207, end: 20110214
  6. GEMZAR [Suspect]
     Indication: PANCREATIC CARCINOMA METASTATIC
     Dosage: 1600 MG, CYCLIC (DAY 1 AND DAY 14 EVERY 4 WEEKS)
     Route: 042
     Dates: start: 20110207
  7. SALOSPIR [Concomitant]
     Indication: PROPHYLAXIS
     Dosage: 100 MG, 1X/DAY
     Route: 048
  8. FLAGYL [Concomitant]
     Indication: PYREXIA
     Dosage: 500 MG, 1X3
     Dates: start: 20110221, end: 20110302
  9. ZINACEF [Concomitant]
     Indication: PYREXIA
     Dosage: 1500 MG, 1X3
     Route: 042
     Dates: start: 20110221, end: 20110225
  10. NEXIUM [Concomitant]
     Indication: PROPHYLAXIS
     Dosage: 20 MG, 1X/DAY
     Route: 048
     Dates: start: 20110207
  11. MEROPENEM [Concomitant]
     Indication: PYREXIA
     Dosage: 2 G, 3X/DAY
     Route: 042
     Dates: start: 20110225
  12. T4 [Concomitant]
     Indication: HYPOTHYROIDISM
     Dosage: 100 MG, 1X/DAY
     Route: 048

REACTIONS (2)
  - BLOOD BILIRUBIN INCREASED [None]
  - BILE DUCT OBSTRUCTION [None]
